FAERS Safety Report 21168533 (Version 1)
Quarter: 2022Q3

REPORT INFORMATION
  Report Type: Report from Study
  Country: CO (occurrence: CO)
  Receive Date: 20220803
  Receipt Date: 20220803
  Transmission Date: 20221027
  Serious: Yes (Other)
  Sender: FDA-Public Use
  Company Number: CO-NOVARTISPH-NVSC2022CO154368

PATIENT
  Sex: Female

DRUGS (2)
  1. TASIGNA [Suspect]
     Active Substance: NILOTINIB
     Indication: Chronic myeloid leukaemia
     Dosage: UNK (STOP DATE: JAN) UNSPECIFIED DATE
     Route: 048
  2. TASIGNA [Suspect]
     Active Substance: NILOTINIB
     Dosage: UNK (START DATE: MAY) UNSPECIFIED START DATE
     Route: 048

REACTIONS (8)
  - Deafness [Unknown]
  - Ill-defined disorder [Unknown]
  - Drug intolerance [Unknown]
  - Feeling abnormal [Unknown]
  - Blood pressure increased [Unknown]
  - Anxiety [Unknown]
  - Confusional state [Unknown]
  - Product supply issue [Unknown]
